FAERS Safety Report 7596578-X (Version None)
Quarter: 2011Q3

REPORT INFORMATION
  Report Type: 
  Country: None (occurrence: None)
  Receive Date: 20110708
  Receipt Date: 20110613
  Transmission Date: 20111222
  Serious: Yes (Other)
  Sender: FDA-Public Use
  Company Number: GB-RANBAXY-2011RR-45197

PATIENT
  Age: 56 Year
  Sex: Female

DRUGS (9)
  1. SIMVASTATIN [Suspect]
     Dosage: 40 MG, UNK
     Dates: end: 20050101
  2. ROSUVASTATIN [Concomitant]
     Dosage: 10 MG, UNK
     Dates: start: 20070201, end: 20070401
  3. FENOFIBRATE [Concomitant]
     Dosage: 160 MG, UNK
     Dates: start: 20050901, end: 20060201
  4. ROSUVASTATIN [Concomitant]
     Dosage: 5 MG, UNK
     Dates: start: 20061201, end: 20070101
  5. ROSUVASTATIN [Concomitant]
     Dosage: 20 MG, UNK
     Dates: start: 20070401, end: 20070701
  6. ATORVASTATIN [Suspect]
     Dosage: 10 MG, UNK
     Dates: start: 20051201, end: 20060101
  7. PRAVASTATIN [Concomitant]
     Indication: BLOOD CHOLESTEROL INCREASED
     Dosage: 10 MG, UNK
     Dates: start: 20060201, end: 20060501
  8. METFORMIN HCL [Concomitant]
     Dosage: 5 G, UNK
  9. PRAVASTATIN [Concomitant]
     Dosage: UNK
     Dates: start: 20060601, end: 20090901

REACTIONS (2)
  - HIGH DENSITY LIPOPROTEIN DECREASED [None]
  - APOLIPOPROTEIN A-I DECREASED [None]
